FAERS Safety Report 6309580-2 (Version None)
Quarter: 2009Q3

REPORT INFORMATION
  Report Type: 
  Country: None (occurrence: None)
  Receive Date: 20090811
  Receipt Date: 20090616
  Transmission Date: 20100115
  Serious: No
  Sender: FDA-Public Use
  Company Number: 1000006863

PATIENT
  Sex: Male

DRUGS (2)
  1. SAVELLA [Suspect]
     Dosage: 12.5 MG (12.5 MG, 1 IN 1 D), ORAL; 25 (12.5, 2 IN 1 D), ORAL
     Route: 048
  2. SAVELLA [Suspect]
     Dosage: 12.5 MG (12.5 MG, 1 IN 1 D), ORAL; 25 (12.5, 2 IN 1 D), ORAL
     Route: 048

REACTIONS (2)
  - PYREXIA [None]
  - RASH [None]
